FAERS Safety Report 7003836-6 (Version None)
Quarter: 2010Q3

REPORT INFORMATION
  Report Type: 
  Country: None (occurrence: None)
  Receive Date: 20100920
  Receipt Date: 20091201
  Transmission Date: 20110219
  Serious: No
  Sender: FDA-Public Use
  Company Number: US-WYE-H12463209

PATIENT
  Sex: Female

DRUGS (3)
  1. PRISTIQ [Suspect]
     Indication: PAIN
     Dosage: 50 MG, FREQUENCY NOT SPECIFIED
     Route: 048
     Dates: start: 20090701, end: 20091101
  2. PRISTIQ [Suspect]
     Indication: DEPRESSION
     Dosage: ^STARTED TAPERING^
     Route: 048
     Dates: start: 20091101, end: 20091101
  3. PRISTIQ [Suspect]
     Route: 048
     Dates: start: 20091101, end: 20091129

REACTIONS (14)
  - ABNORMAL DREAMS [None]
  - BLOOD PRESSURE INCREASED [None]
  - CONFUSIONAL STATE [None]
  - DEPRESSION [None]
  - DIZZINESS [None]
  - DRUG WITHDRAWAL SYNDROME [None]
  - HYPERHIDROSIS [None]
  - INCREASED APPETITE [None]
  - MEMORY IMPAIRMENT [None]
  - PAIN [None]
  - PARAESTHESIA [None]
  - SENSATION OF HEAVINESS [None]
  - VISION BLURRED [None]
  - WEIGHT INCREASED [None]
